FAERS Safety Report 13873287 (Version 2)
Quarter: 2017Q3

REPORT INFORMATION
  Report Type: Spontaneous
  Country: US (occurrence: US)
  Receive Date: 20170816
  Receipt Date: 20170922
  Transmission Date: 20171127
  Serious: Yes (Other)
  Sender: FDA-Public Use
  Company Number: US-ENDO PHARMACEUTICALS INC-2017-004356

PATIENT
  Age: 60 Year
  Sex: Male
  Weight: 100.23 kg

DRUGS (7)
  1. TESTOPEL [Suspect]
     Active Substance: TESTOSTERONE
     Indication: BLOOD TESTOSTERONE DECREASED
     Dosage: 1275 MG, 17 PELLETS INTO LEFT HIP, EVERY 5 MONTHS
     Route: 058
     Dates: start: 20170117, end: 2017
  2. VITAMIN D                          /00107901/ [Concomitant]
     Active Substance: ERGOCALCIFEROL
     Indication: VITAMIN SUPPLEMENTATION
     Dosage: UNK UNKNOWN, UNKNOWN
     Route: 065
  3. TOPROL XL [Concomitant]
     Active Substance: METOPROLOL SUCCINATE
     Indication: HYPERTENSION
     Dosage: 100 MG, BID
     Route: 065
  4. ASPIRIN                            /00002701/ [Concomitant]
     Active Substance: ASPIRIN
     Indication: CARDIAC DISORDER
     Dosage: UNK UNKNOWN, UNKNOWN
     Route: 065
  5. TESTOPEL [Suspect]
     Active Substance: TESTOSTERONE
     Dosage: UNK MG, EVERY 5 MONTHS
     Route: 058
     Dates: start: 2017
  6. TESTOPEL [Suspect]
     Active Substance: TESTOSTERONE
     Dosage: UNK MG, EVERY 5 MONTHS
     Route: 058
     Dates: start: 2015
  7. VITAMIN B NOS [Concomitant]
     Active Substance: VITAMIN B
     Indication: VITAMIN SUPPLEMENTATION
     Dosage: UNK UNKNOWN, UNKNOWN
     Route: 065

REACTIONS (6)
  - Infection [Recovered/Resolved]
  - Product use complaint [Unknown]
  - Product quality issue [Unknown]
  - Foreign body [Unknown]
  - Expulsion of medication [Recovered/Resolved]
  - Prescribed overdose [Recovered/Resolved]

NARRATIVE: CASE EVENT DATE: 2017
